FAERS Safety Report 6760659-0 (Version None)
Quarter: 2010Q2

REPORT INFORMATION
  Report Type: 
  Country: None (occurrence: None)
  Receive Date: 20100608
  Receipt Date: 20100603
  Transmission Date: 20101027
  Serious: Yes (Other)
  Sender: FDA-Public Use
  Company Number: CN-JNJFOC-20100601785

PATIENT
  Age: 11 Year
  Sex: Male

DRUGS (3)
  1. TOPAMAX [Suspect]
     Indication: EPILEPSY
     Dosage: 25 MG  50 MG  50 MG TID
     Route: 048
  2. CLONAZEPAM [Concomitant]
  3. VITAMIN B6 [Concomitant]

REACTIONS (5)
  - CONSTIPATION [None]
  - MALAISE [None]
  - MANIA [None]
  - SINUSITIS [None]
  - VISION BLURRED [None]
